FAERS Safety Report 5259013-2 (Version None)
Quarter: 2007Q1

REPORT INFORMATION
  Report Type: 
  Country: None (occurrence: None)
  Receive Date: 20070305
  Receipt Date: 20070221
  Transmission Date: 20070707
  Serious: Yes (Other)
  Sender: FDA-Public Use
  Company Number: GXKR2007ES01913

PATIENT

DRUGS (2)
  1. RIBAVIRIN [Suspect]
     Indication: HEPATITIS C VIRUS
  2. PEGINTERFERON (PEGINTERFERON ALFA-2A) [Suspect]
     Indication: HEPATITIS C VIRUS

REACTIONS (1)
  - HEPATIC NEOPLASM MALIGNANT [None]
